FAERS Safety Report 6203770-5 (Version None)
Quarter: 2009Q2

REPORT INFORMATION
  Report Type: 
  Country: None (occurrence: None)
  Receive Date: 20090522
  Receipt Date: 20090511
  Transmission Date: 20091009
  Serious: Yes (Hospitalization)
  Sender: FDA-Public Use
  Company Number: 20090511VANCO0957

PATIENT
  Age: 59 Year
  Sex: Female
  Weight: 110.2241 kg

DRUGS (8)
  1. VANOCIN ORAL    (VANCOMYCIN HYDROCHLORIDE) [Suspect]
     Indication: CLOSTRIDIUM DIFFICILE COLITIS
     Dosage: (125 MG, 4 IN 1 D), ORAL
     Route: 048
     Dates: start: 20090404, end: 20090407
  2. SOTALOL HYDROCHLORIDE [Concomitant]
  3. ZOLOFT [Concomitant]
  4. LISINOPRIL [Concomitant]
  5. FUROSEMIDE [Concomitant]
  6. KLOR-CON [Concomitant]
  7. PREMPRO (PROVELLA-14) [Concomitant]
  8. ASPIRIN [Concomitant]

REACTIONS (3)
  - DEHYDRATION [None]
  - DYSGEUSIA [None]
  - VOMITING [None]
